FAERS Safety Report 20098190 (Version 14)
Quarter: 2022Q1

REPORT INFORMATION
  Report Type: Report from Study
  Country: KR (occurrence: None)
  Receive Date: 20211122
  Receipt Date: 20220307
  Transmission Date: 20220424
  Serious: Yes (Hospitalization)
  Sender: FDA-Public Use
  Company Number: KR-Eisai Medical Research-EC-2021-102416

PATIENT
  Age: 50 Year
  Sex: Male
  Weight: 65 kg

DRUGS (12)
  1. LENVATINIB [Suspect]
     Active Substance: LENVATINIB
     Indication: Clear cell renal cell carcinoma
     Dosage: STARTING DOSE AT 20MG, FLUCTUATED DOSAGE
     Route: 048
     Dates: start: 20210622, end: 20211007
  2. LENVATINIB [Suspect]
     Active Substance: LENVATINIB
     Route: 048
     Dates: start: 20211008, end: 20211025
  3. LENVATINIB [Suspect]
     Active Substance: LENVATINIB
     Route: 048
     Dates: start: 20211029, end: 20211112
  4. QUAVONLIMAB [Suspect]
     Active Substance: QUAVONLIMAB
     Indication: Clear cell renal cell carcinoma
     Dosage: QUAVONLIMAB 25 MG (+) PEMBROLIZUMAB 400 MG : CO-FORMULATED PRODUCT
     Route: 042
     Dates: start: 20210622, end: 20210803
  5. QUAVONLIMAB [Suspect]
     Active Substance: QUAVONLIMAB
     Dosage: QUAVONLIMAB 25 MG (+) PEMBROLIZUMAB 400 MG : CO-FORMULATED PRODUCT
     Route: 042
     Dates: start: 20210914, end: 20210914
  6. QUAVONLIMAB [Suspect]
     Active Substance: QUAVONLIMAB
     Dosage: QUAVONLIMAB 25 MG (+) PEMBROLIZUMAB 400 MG : CO-FORMULATED PRODUCT
     Route: 042
     Dates: start: 20220107, end: 20220107
  7. QUAVONLIMAB [Suspect]
     Active Substance: QUAVONLIMAB
     Dosage: QUAVONLIMAB 25 MG (+) PEMBROLIZUMAB 400 MG : CO-FORMULATED PRODUCT
     Route: 042
     Dates: start: 20220215
  8. LACTICARE ZEMAGIS [Concomitant]
     Dates: start: 20210820, end: 20211119
  9. PEMBROLIZUMAB [Suspect]
     Active Substance: PEMBROLIZUMAB
  10. PEMBROLIZUMAB [Suspect]
     Active Substance: PEMBROLIZUMAB
  11. PEMBROLIZUMAB [Suspect]
     Active Substance: PEMBROLIZUMAB
  12. PEMBROLIZUMAB [Suspect]
     Active Substance: PEMBROLIZUMAB

REACTIONS (2)
  - Atypical pneumonia [Recovered/Resolved]
  - Anaemia [Not Recovered/Not Resolved]

NARRATIVE: CASE EVENT DATE: 20211016
